FAERS Safety Report 6526357-3 (Version None)
Quarter: 2010Q1

REPORT INFORMATION
  Report Type: 
  Country: None (occurrence: None)
  Receive Date: 20100105
  Receipt Date: 20091228
  Transmission Date: 20100710
  Serious: Yes (Other)
  Sender: FDA-Public Use
  Company Number: US-RB-000026-10

PATIENT
  Sex: Female

DRUGS (1)
  1. MUCINEX [Suspect]
     Dosage: TOOK 1 TABLET
     Route: 048
     Dates: start: 20091227

REACTIONS (1)
  - FAECES DISCOLOURED [None]
